FAERS Safety Report 21960485 (Version 1)
Quarter: 2023Q1

REPORT INFORMATION
  Report Type: Spontaneous
  Country: NL (occurrence: NL)
  Receive Date: 20230207
  Receipt Date: 20230207
  Transmission Date: 20230417
  Serious: Yes (Other)
  Sender: FDA-Public Use
  Company Number: NL-LRB-00862863

PATIENT
  Sex: Female
  Weight: 75 kg

DRUGS (1)
  1. TAMOXIFEN [Suspect]
     Active Substance: TAMOXIFEN
     Indication: Breast cancer
     Dosage: 20 MILLIGRAM, ONCE A DAY (1 X PER DAG 1 STUK)
     Route: 065
     Dates: start: 20220419

REACTIONS (1)
  - Iridocyclitis [Recovering/Resolving]
